FAERS Safety Report 11748540 (Version 6)
Quarter: 2015Q4

REPORT INFORMATION
  Report Type: Report from Study
  Country: US (occurrence: US)
  Receive Date: 20151117
  Receipt Date: 20151230
  Transmission Date: 20160304
  Serious: Yes (Other)
  Sender: FDA-Public Use
  Company Number: US-AMGEN-USASP2015120225

PATIENT
  Age: 80 Year
  Sex: Female

DRUGS (2)
  1. ENBREL [Suspect]
     Active Substance: ETANERCEPT
     Dosage: 50 MG, IN EVERY 8 TO 10 DAYS
     Route: 065
  2. ENBREL [Suspect]
     Active Substance: ETANERCEPT
     Indication: RHEUMATOID ARTHRITIS
     Dosage: 50 MG, WEEKLY
     Route: 065

REACTIONS (6)
  - Arthritis [Unknown]
  - Rhinorrhoea [Unknown]
  - Fatigue [Unknown]
  - Vomiting [Unknown]
  - Glaucoma [Unknown]
  - Device malfunction [Unknown]

NARRATIVE: CASE EVENT DATE: 201511
